FAERS Safety Report 8508451-0 (Version None)
Quarter: 2012Q2

REPORT INFORMATION
  Report Type: 
  Country: None (occurrence: None)
  Receive Date: 20120405
  Receipt Date: 20090109
  Transmission Date: 20120825
  Serious: Yes (Other)
  Sender: FDA-Public Use
  Company Number: PHEH2009US00672

PATIENT
  Age: 79 Year
  Sex: Female
  Weight: 82.1 kg

DRUGS (3)
  1. RECLAST [Suspect]
     Indication: OSTEOPOROSIS
     Dosage: 5 MG YEARLY, INTRAVENOUS
     Route: 042
     Dates: start: 20090106
  2. SERAX [Concomitant]
  3. METHOTREXATE ^LEDERLE^ (METHOTREXATE SODIUM) [Concomitant]

REACTIONS (3)
  - BEDRIDDEN [None]
  - HYPOCALCAEMIA [None]
  - MUSCULAR WEAKNESS [None]
